FAERS Safety Report 26048179 (Version 2)
Quarter: 2025Q4

REPORT INFORMATION
  Report Type: Report from Study
  Country: CN (occurrence: CN)
  Receive Date: 20251114
  Receipt Date: 20251230
  Transmission Date: 20260118
  Serious: Yes (Other)
  Sender: PFIZER
  Company Number: CN-PFIZER INC-PV202500116121

PATIENT
  Age: 26 Year
  Sex: Male

DRUGS (1)
  1. XYNTHA [Suspect]
     Active Substance: MOROCTOCOG ALFA
     Indication: Factor VIII deficiency
     Dosage: 2000 IU, 2X/DAY
     Route: 040

REACTIONS (3)
  - Haemarthrosis [Unknown]
  - Epilepsy [Unknown]
  - Joint swelling [Unknown]
